FAERS Safety Report 14134535 (Version 1)
Quarter: 2017Q4

REPORT INFORMATION
  Report Type: Spontaneous
  Country: IT (occurrence: IT)
  Receive Date: 20171027
  Receipt Date: 20171027
  Transmission Date: 20180321
  Serious: Yes (Life-Threatening)
  Sender: FDA-Public Use
  Company Number: IT-JNJFOC-20171028858

PATIENT
  Age: 6 Year
  Sex: Male

DRUGS (4)
  1. CEFACLOR MONOHYDRATE [Suspect]
     Active Substance: CEFACLOR
     Indication: COUGH
     Route: 048
     Dates: start: 20070317, end: 20070317
  2. IBUPROFEN. [Suspect]
     Active Substance: IBUPROFEN
     Route: 048
  3. IBUPROFEN. [Suspect]
     Active Substance: IBUPROFEN
     Indication: COUGH
     Route: 048
     Dates: start: 20070317, end: 20070317
  4. PARACODINE [Suspect]
     Active Substance: DIHYDROCODEINE BITARTRATE
     Indication: COUGH
     Route: 048
     Dates: start: 20070317, end: 20070317

REACTIONS (3)
  - Laryngeal oedema [Recovered/Resolved]
  - Lip oedema [Recovered/Resolved]
  - Rash maculo-papular [Recovered/Resolved]

NARRATIVE: CASE EVENT DATE: 20070317
